FAERS Safety Report 21610038 (Version 1)
Quarter: 2022Q4

REPORT INFORMATION
  Report Type: Spontaneous
  Country: IT (occurrence: IT)
  Receive Date: 20221117
  Receipt Date: 20221117
  Transmission Date: 20230113
  Serious: Yes (Life-Threatening, Hospitalization)
  Sender: FDA-Public Use
  Company Number: None

PATIENT
  Age: 57 Year
  Sex: Male
  Weight: 61 kg

DRUGS (7)
  1. IRINOTECAN [Suspect]
     Active Substance: IRINOTECAN
     Indication: Adenocarcinoma pancreas
     Dosage: 180 MILLIGRAM/SQ. METER REDUCED BY 31%
     Route: 042
     Dates: start: 20220819, end: 20220819
  2. FLUOROURACIL [Suspect]
     Active Substance: FLUOROURACIL
     Indication: Adenocarcinoma pancreas
     Dosage: 2400 MILLIGRAM/SQ. METER REDUCED BY 16%
     Route: 042
     Dates: start: 20220819, end: 20220821
  3. FLUOROURACIL [Suspect]
     Active Substance: FLUOROURACIL
     Dosage: 400 MILLIGRAM/SQ. METER REDUCED BY 8%
     Route: 042
     Dates: start: 20220819, end: 20220819
  4. OXALIPLATIN [Suspect]
     Active Substance: OXALIPLATIN
     Indication: Adenocarcinoma pancreas
     Dosage: MILLIGRAM/SQ. METER WITH A 21% REDUCTION
     Route: 042
     Dates: start: 20220819, end: 20220819
  5. Tavor [Concomitant]
     Indication: Anxiety
     Dosage: 7.5 MG, QD, 1 TABLET THREE TIMES A DAY,
     Route: 048
  6. DULOXETINE [Concomitant]
     Active Substance: DULOXETINE
     Indication: Depression
     Dosage: 60 MG, QD
     Route: 048
  7. BENSERAZIDE HYDROCHLORIDE\LEVODOPA [Concomitant]
     Active Substance: BENSERAZIDE HYDROCHLORIDE\LEVODOPA
     Indication: Parkinson^s disease
     Dosage: 100 MG+ 25 MG DOSAGE: 2 TABLETS 3 TIMES A DAY
     Route: 048

REACTIONS (4)
  - Hypotension [Recovered/Resolved]
  - Dehydration [Recovered/Resolved]
  - Asthenia [Recovering/Resolving]
  - Diarrhoea [Recovered/Resolved]

NARRATIVE: CASE EVENT DATE: 20220826
